FAERS Safety Report 6294305-X (Version None)
Quarter: 2009Q3

REPORT INFORMATION
  Report Type: 
  Country: None (occurrence: None)
  Receive Date: 20090803
  Receipt Date: 20090531
  Transmission Date: 20100115
  Serious: No
  Sender: FDA-Public Use
  Company Number: A0787593A

PATIENT
  Sex: Male

DRUGS (1)
  1. NICORETTE WHITE ICE OTC 4MG [Suspect]

REACTIONS (1)
  - NICOTINE DEPENDENCE [None]
